FAERS Safety Report 21219342 (Version 1)
Quarter: 2022Q3

REPORT INFORMATION
  Report Type: Spontaneous
  Country: US (occurrence: US)
  Receive Date: 20220817
  Receipt Date: 20220817
  Transmission Date: 20221027
  Serious: Yes (Other)
  Sender: FDA-Public Use
  Company Number: US-CELLTRION INC.-2022US012895

PATIENT

DRUGS (3)
  1. INFLIXIMAB [Suspect]
     Active Substance: INFLIXIMAB
     Indication: Mesenteric panniculitis
     Dosage: 5 MG/KG GIVEN AT 0-2-6 WEEKS INTERVALS FOR INDUCTION FOLLOWED BY EVERY 8 WEEKS MAINTENANCE OF REMISS
  2. USTEKINUMAB [Suspect]
     Active Substance: USTEKINUMAB
     Indication: Mesenteric panniculitis
     Dosage: 520 MILLIGRAM
     Route: 042
  3. USTEKINUMAB [Suspect]
     Active Substance: USTEKINUMAB
     Dosage: 90 MILLIGRAM, EVERY 8 WEEKS
     Route: 058

REACTIONS (4)
  - B-cell lymphoma [Unknown]
  - Mesenteric panniculitis [Unknown]
  - Drug effective for unapproved indication [Unknown]
  - Off label use [Unknown]
